FAERS Safety Report 25307663 (Version 1)
Quarter: 2025Q2

REPORT INFORMATION
  Report Type: Spontaneous
  Country: HR (occurrence: HR)
  Receive Date: 20250513
  Receipt Date: 20250513
  Transmission Date: 20250717
  Serious: Yes (Other)
  Sender: SANDOZ
  Company Number: None

PATIENT
  Age: 13 Year
  Sex: Female
  Weight: 46 kg

DRUGS (3)
  1. DUPHASTON [Suspect]
     Active Substance: DYDROGESTERONE
     Indication: Product used for unknown indication
     Dosage: 110 MG, QD
     Route: 048
     Dates: start: 20250330, end: 20250330
  2. IBUPROFEN LYSINE [Suspect]
     Active Substance: IBUPROFEN LYSINE
     Indication: Product used for unknown indication
     Dosage: UNK, QD
     Route: 048
     Dates: start: 20250330, end: 20250330
  3. ACETAMINOPHEN [Suspect]
     Active Substance: ACETAMINOPHEN
     Indication: Product used for unknown indication
     Dosage: 4000 MG, QD
     Route: 048
     Dates: start: 20250330, end: 20250330

REACTIONS (3)
  - Suicide attempt [Unknown]
  - No adverse event [Unknown]
  - Intentional overdose [Unknown]

NARRATIVE: CASE EVENT DATE: 20250330
